FAERS Safety Report 7335548-3 (Version None)
Quarter: 2011Q1

REPORT INFORMATION
  Report Type: 
  Country: None (occurrence: None)
  Receive Date: 20110307
  Receipt Date: 20110302
  Transmission Date: 20110831
  Serious: Yes (Hospitalization, Other)
  Sender: FDA-Public Use
  Company Number: ES-PFIZER INC-2011045252

PATIENT
  Age: 84 Year
  Sex: Female

DRUGS (5)
  1. ADIRO [Suspect]
     Dosage: UNK
     Dates: start: 20090101
  2. CLOPIDOGREL [Suspect]
     Dosage: UNK
     Dates: start: 20090101
  3. ALDACTONE [Suspect]
     Dosage: UNK
     Route: 048
     Dates: start: 20090101, end: 20091001
  4. ALLOPURINOL [Suspect]
     Indication: HYPERURICAEMIA
     Dosage: 300 MG, 1X/DAY
     Route: 048
     Dates: start: 20090101, end: 20091101
  5. CIPROFLOXACIN [Suspect]
     Dosage: UNK
     Dates: start: 20090101

REACTIONS (1)
  - TOXIC SKIN ERUPTION [None]
